FAERS Safety Report 10190290 (Version 1)
Quarter: 2014Q2

REPORT INFORMATION
  Report Type: Spontaneous
  Country: US (occurrence: US)
  Receive Date: 20140522
  Receipt Date: 20140522
  Transmission Date: 20141212
  Serious: No
  Sender: FDA-Public Use
  Company Number: US-ASTRAZENECA-2013SE93343

PATIENT
  Sex: Male

DRUGS (3)
  1. PULMICORT RESPULES [Suspect]
     Route: 055
  2. PULMICORT RESPULES [Suspect]
     Dosage: BUDESONIDE
     Route: 065
  3. PULMICORT RESPULES [Suspect]
     Dosage: PULMICORT FLEXHALER
     Route: 055

REACTIONS (2)
  - Off label use [Unknown]
  - Productive cough [Unknown]
